FAERS Safety Report 4385621-7 (Version None)
Quarter: 2004Q2

REPORT INFORMATION
  Report Type: 
  Country: None (occurrence: None)
  Receive Date: 20040625
  Receipt Date: 20040625
  Transmission Date: 20050107
  Serious: Yes (Hospitalization)
  Sender: FDA-Public Use
  Company Number: None

PATIENT
  Age: 65 Year
  Sex: Female

DRUGS (1)
  1. WARFARIN SODIUM [Suspect]
     Dosage: PO
     Route: 048
     Dates: end: 20040201

REACTIONS (7)
  - ASTHENIA [None]
  - BLOOD CREATININE INCREASED [None]
  - BLOOD POTASSIUM DECREASED [None]
  - DIZZINESS [None]
  - DRUG TOXICITY [None]
  - INTERNATIONAL NORMALISED RATIO INCREASED [None]
  - MARKEDLY REDUCED DIETARY INTAKE [None]
